FAERS Safety Report 13092751 (Version 2)
Quarter: 2017Q1

REPORT INFORMATION
  Report Type: Spontaneous
  Country: US (occurrence: US)
  Receive Date: 20170106
  Receipt Date: 20170314
  Transmission Date: 20170428
  Serious: No
  Sender: FDA-Public Use
  Company Number: US-JNJFOC-20161211919

PATIENT
  Age: 2 Month
  Sex: Female
  Weight: 4.08 kg

DRUGS (1)
  1. TYLENOL INFANT SUSPENSION DROPS [Suspect]
     Active Substance: ACETAMINOPHEN
     Indication: PRODUCT USED FOR UNKNOWN INDICATION
     Dosage: NOT QUITE 3.75ML
     Route: 048
     Dates: start: 20161212

REACTIONS (1)
  - Drug administration error [Unknown]

NARRATIVE: CASE EVENT DATE: 20161212
